FAERS Safety Report 12990584 (Version 1)
Quarter: 2016Q4

REPORT INFORMATION
  Report Type: Spontaneous
  Country: US (occurrence: US)
  Receive Date: 20161201
  Receipt Date: 20161201
  Transmission Date: 20170207
  Serious: No
  Sender: FDA-Public Use
  Company Number: None

PATIENT

DRUGS (1)
  1. NEULASTA [Suspect]
     Active Substance: PEGFILGRASTIM

REACTIONS (11)
  - Breast cancer metastatic [None]
  - Metastases to bone [None]
  - Wrong technique in product usage process [None]
  - Metastases to lymph nodes [None]
  - Pain in extremity [None]
  - Muscle spasms [None]
  - Vision blurred [None]
  - Metastases to central nervous system [None]
  - Feeling abnormal [None]
  - Metastases to liver [None]
  - Headache [None]
